FAERS Safety Report 8173053-5 (Version None)
Quarter: 2012Q1

REPORT INFORMATION
  Report Type: 
  Country: None (occurrence: None)
  Receive Date: 20120229
  Receipt Date: 20120220
  Transmission Date: 20120608
  Serious: Yes (Hospitalization)
  Sender: FDA-Public Use
  Company Number: AT-JNJFOC-20081007322

PATIENT
  Sex: Female
  Weight: 74 kg

DRUGS (27)
  1. GOLIMUMAB [Suspect]
     Route: 058
     Dates: start: 20071204
  2. GOLIMUMAB [Suspect]
     Route: 058
     Dates: start: 20071227
  3. GOLIMUMAB [Suspect]
     Route: 058
     Dates: start: 20070320
  4. LEVOTHYROXINE SODIUM [Concomitant]
     Route: 048
     Dates: start: 20000201
  5. GOLIMUMAB [Suspect]
     Route: 058
     Dates: start: 20071031
  6. GOLIMUMAB [Suspect]
     Route: 058
     Dates: start: 20080708
  7. GOLIMUMAB [Suspect]
     Route: 058
     Dates: start: 20070710
  8. METHYLPREDNISOLONE [Concomitant]
     Route: 048
     Dates: start: 20040801
  9. XEFO [Concomitant]
     Route: 048
     Dates: start: 20060501
  10. GOLIMUMAB [Suspect]
     Route: 058
     Dates: start: 20080219
  11. GOLIMUMAB [Suspect]
     Indication: RHEUMATOID ARTHRITIS
     Route: 058
     Dates: start: 20070904
  12. GOLIMUMAB [Suspect]
     Route: 058
     Dates: start: 20080805
  13. GOLIMUMAB [Suspect]
     Route: 058
     Dates: start: 20080930
  14. GOLIMUMAB [Suspect]
     Route: 058
     Dates: start: 20080318
  15. GOLIMUMAB [Suspect]
     Route: 058
     Dates: start: 20071002
  16. FAMOSIN [Concomitant]
     Route: 048
     Dates: start: 20060501
  17. GOLIMUMAB [Suspect]
     Route: 058
     Dates: start: 20080123
  18. GOLIMUMAB [Suspect]
     Route: 058
     Dates: start: 20080513
  19. GOLIMUMAB [Suspect]
     Route: 058
     Dates: start: 20080902
  20. GOLIMUMAB [Suspect]
     Route: 058
     Dates: start: 20070418
  21. CIPROFLOXACIN HYDROCHLORIDE [Concomitant]
     Route: 048
     Dates: start: 20081024
  22. BISOPROLOL FUMARATE [Concomitant]
     Route: 048
     Dates: start: 20050301
  23. GOLIMUMAB [Suspect]
     Route: 058
     Dates: start: 20080415
  24. GOLIMUMAB [Suspect]
     Route: 058
     Dates: start: 20080610
  25. GOLIMUMAB [Suspect]
     Route: 058
     Dates: start: 20070807
  26. GOLIMUMAB [Suspect]
     Route: 058
     Dates: start: 20070612
  27. GOLIMUMAB [Suspect]
     Route: 058
     Dates: start: 20080510

REACTIONS (1)
  - PYELONEPHRITIS [None]
